FAERS Safety Report 4970806-9 (Version None)
Quarter: 2006Q2

REPORT INFORMATION
  Report Type: 
  Country: None (occurrence: None)
  Receive Date: 20060411
  Receipt Date: 20060411
  Transmission Date: 20061013
  Serious: Yes (Hospitalization)
  Sender: FDA-Public Use
  Company Number: None

PATIENT
  Age: 39 Year
  Sex: Male
  Weight: 89.4 kg

DRUGS (1)
  1. OXANDROLONE [Suspect]
     Indication: PROMOTION OF WOUND HEALING
     Dosage: 20MG, 10MG BID, ORAL
     Route: 048
     Dates: start: 20060106, end: 20060123

REACTIONS (1)
  - HEPATIC ENZYME ABNORMAL [None]
